FAERS Safety Report 20050845 (Version 1)
Quarter: 2021Q4

REPORT INFORMATION
  Report Type: Other
  Country: LB (occurrence: LB)
  Receive Date: 20211110
  Receipt Date: 20211110
  Transmission Date: 20220304
  Serious: Yes (Other)
  Sender: FDA-Public Use
  Company Number: LB-002147023-NVSC2021LB249357

PATIENT
  Sex: Male
  Weight: 109 kg

DRUGS (1)
  1. LUCENTIS [Suspect]
     Active Substance: RANIBIZUMAB
     Indication: Diabetic retinal oedema
     Route: 050
     Dates: start: 20200717, end: 20210426

REACTIONS (2)
  - Blindness unilateral [Not Recovered/Not Resolved]
  - Eye oedema [Not Recovered/Not Resolved]
